FAERS Safety Report 7255863-1 (Version None)
Quarter: 2011Q1

REPORT INFORMATION
  Report Type: 
  Country: None (occurrence: None)
  Receive Date: 20110129
  Receipt Date: 20100517
  Transmission Date: 20110831
  Serious: No
  Sender: FDA-Public Use
  Company Number: US-ABBOTT-10P-163-0636400-00

PATIENT
  Sex: Male
  Weight: 53.572 kg

DRUGS (7)
  1. HUMIRA [Suspect]
     Route: 058
     Dates: start: 20091101
  2. CALCIUM [Concomitant]
     Indication: MINERAL SUPPLEMENTATION
  3. IRON [Concomitant]
     Indication: BLOOD IRON DECREASED
  4. HUMIRA [Suspect]
     Indication: CROHN'S DISEASE
     Route: 058
     Dates: start: 20080301, end: 20091101
  5. MULTIPLE VITAMIN [Concomitant]
     Indication: VITAMIN SUPPLEMENTATION
  6. PREDNISONE TAB [Suspect]
     Indication: CROHN'S DISEASE
  7. LORATADINE [Concomitant]
     Indication: DRUG HYPERSENSITIVITY

REACTIONS (7)
  - ASTHENIA [None]
  - VOMITING [None]
  - WEIGHT GAIN POOR [None]
  - HYPERSENSITIVITY [None]
  - CROHN'S DISEASE [None]
  - ABDOMINAL PAIN [None]
  - MALAISE [None]
